FAERS Safety Report 25271515 (Version 2)
Quarter: 2025Q3

REPORT INFORMATION
  Report Type: Spontaneous
  Country: US (occurrence: US)
  Receive Date: 20250506
  Receipt Date: 20250908
  Transmission Date: 20251021
  Serious: No
  Sender: ROCHE
  Company Number: US-ROCHE-10000274207

PATIENT
  Age: 16 Year
  Sex: Male

DRUGS (1)
  1. HEMLIBRA [Suspect]
     Active Substance: EMICIZUMAB-KXWH
     Indication: Factor VIII deficiency
     Route: 058
     Dates: start: 201810

REACTIONS (4)
  - Haemorrhage [Not Recovered/Not Resolved]
  - Swelling [Unknown]
  - Wrong technique in product usage process [Unknown]
  - Arthralgia [Unknown]

NARRATIVE: CASE EVENT DATE: 20250310
